FAERS Safety Report 23269491 (Version 1)
Quarter: 2023Q4

REPORT INFORMATION
  Report Type: Other
  Country: TN (occurrence: None)
  Receive Date: 20231207
  Receipt Date: 20231207
  Transmission Date: 20240109
  Serious: Yes (Death)
  Sender: FDA-Public Use
  Company Number: TN-ROCHE-3469542

PATIENT
  Sex: Female

DRUGS (1)
  1. MYCOPHENOLATE MOFETIL [Suspect]
     Active Substance: MYCOPHENOLATE MOFETIL
     Indication: Systemic lupus erythematosus
     Route: 065

REACTIONS (4)
  - Mucormycosis [Fatal]
  - Cytomegalovirus infection [Fatal]
  - Pneumonia cytomegaloviral [Fatal]
  - Off label use [Unknown]
